FAERS Safety Report 4358220-0 (Version None)
Quarter: 2004Q2

REPORT INFORMATION
  Report Type: 
  Country: None (occurrence: None)
  Receive Date: 20040511
  Receipt Date: 20040429
  Transmission Date: 20050107
  Serious: Yes (Hospitalization)
  Sender: FDA-Public Use
  Company Number: 2004029359

PATIENT
  Age: 67 Year
  Sex: Female
  Weight: 64.8644 kg

DRUGS (3)
  1. NEURONTIN [Suspect]
     Indication: DRUG WITHDRAWAL SYNDROME
     Dosage: ORAL
     Route: 048
     Dates: start: 20040301
  2. ALPRAZOLAM [Suspect]
     Indication: ANXIETY
  3. LEVOTHYROXINE SODIUM [Concomitant]

REACTIONS (3)
  - COORDINATION ABNORMAL [None]
  - DRUG WITHDRAWAL SYNDROME [None]
  - DYSKINESIA [None]
